FAERS Safety Report 6069004-X (Version None)
Quarter: 2009Q1

REPORT INFORMATION
  Report Type: 
  Country: None (occurrence: None)
  Receive Date: 20090206
  Receipt Date: 20090129
  Transmission Date: 20090719
  Serious: Yes (Hospitalization, Other)
  Sender: FDA-Public Use
  Company Number: US-ELI_LILLY_AND_COMPANY-US200901005483

PATIENT
  Sex: Female
  Weight: 136.5 kg

DRUGS (6)
  1. BYETTA [Suspect]
     Indication: TYPE 2 DIABETES MELLITUS
     Dosage: 5 UG, 2/D
     Route: 058
     Dates: start: 20060101, end: 20060101
  2. BYETTA [Suspect]
     Dosage: 10 UG, 2/D
     Route: 058
     Dates: start: 20060101
  3. NEXIUM [Concomitant]
     Dosage: 40 MG, DAILY (1/D)
     Route: 048
  4. ASPIRIN [Concomitant]
     Dosage: 81 MG, DAILY (1/D)
     Route: 048
  5. ADVAIR DISKUS 100/50 [Concomitant]
     Indication: ASTHMA
     Dosage: UNK, 2/D
     Route: 055
  6. THYROID TAB [Concomitant]
     Indication: THYROID DISORDER
     Dosage: 60 MG, DAILY (1/D)
     Route: 048

REACTIONS (6)
  - CONSCIOUSNESS FLUCTUATING [None]
  - ECZEMA [None]
  - MYOCARDIAL INFARCTION [None]
  - PAIN [None]
  - PRURITUS GENERALISED [None]
  - THYROID MASS [None]
